FAERS Safety Report 10723518 (Version 1)
Quarter: 2015Q1

REPORT INFORMATION
  Report Type: Spontaneous
  Country: US (occurrence: None)
  Receive Date: 20150114
  Receipt Date: 20150114
  Transmission Date: 20150721
  Serious: Yes (Other)
  Sender: FDA-Public Use
  Company Number: 001852987A

PATIENT
  Age: 35 Year
  Sex: Male

DRUGS (6)
  1. PROACTIV REFINING MASK [Suspect]
     Active Substance: SULFUR
     Indication: ACNE
     Dosage: ONCE DAILY DERMAL
     Dates: start: 20140515, end: 20141214
  2. THYROID MEDICATION [Concomitant]
     Active Substance: UNSPECIFIED INGREDIENT
  3. FISH OIL [Concomitant]
     Active Substance: FISH OIL
  4. PROACTIVPLUS SKIN SMOOTHING EXFOLIATOR [Suspect]
     Active Substance: BENZOYL PEROXIDE
     Indication: ACNE
     Dosage: ONCE DAILY DERMAL
     Dates: start: 20140515, end: 20141214
  5. PROACTIV PLUS PORE TARGETING TREATMENT [Suspect]
     Active Substance: BENZOYL PEROXIDE
     Indication: ACNE
     Dosage: ONCE DAILY DERMAL
     Dates: start: 20140515, end: 20141214
  6. PROACTIV PLUS COMPLEXION PERFECTING HYDRATOR [Suspect]
     Active Substance: SALICYLIC ACID
     Indication: ACNE
     Dosage: ONCE DAILY DERMAL
     Dates: start: 20140515, end: 20141214

REACTIONS (4)
  - Accidental exposure to product [None]
  - Lip swelling [None]
  - Pruritus [None]
  - Swollen tongue [None]

NARRATIVE: CASE EVENT DATE: 20141214
